FAERS Safety Report 10132637 (Version 1)
Quarter: 2014Q2

REPORT INFORMATION
  Report Type: Spontaneous
  Country: TW (occurrence: TW)
  Receive Date: 20140428
  Receipt Date: 20140428
  Transmission Date: 20141212
  Serious: Yes (Other)
  Sender: FDA-Public Use
  Company Number: TW-JHP PHARMACEUTICALS, LLC-JHP201400240

PATIENT
  Age: 20 Year
  Sex: Male

DRUGS (1)
  1. KETALAR [Suspect]
     Indication: DRUG ABUSE
     Dosage: UNK

REACTIONS (4)
  - Hydronephrosis [Unknown]
  - Ureteral disorder [Unknown]
  - Cystitis interstitial [Unknown]
  - Bladder disorder [Unknown]
